FAERS Safety Report 17213505 (Version 8)
Quarter: 2021Q1

REPORT INFORMATION
  Report Type: Spontaneous
  Country: US (occurrence: US)
  Receive Date: 20191230
  Receipt Date: 20210222
  Transmission Date: 20210419
  Serious: Yes (Other)
  Sender: FDA-Public Use
  Company Number: US-PFIZER INC-2019448951

PATIENT
  Age: 60 Year
  Sex: Female
  Weight: 80.29 kg

DRUGS (4)
  1. PRISTIQ EXTENDED?RELEASE [Suspect]
     Active Substance: DESVENLAFAXINE SUCCINATE
     Dosage: 150 MG, DAILY (1.5 TABS)
     Route: 048
     Dates: start: 20200204
  2. PRISTIQ EXTENDED?RELEASE [Suspect]
     Active Substance: DESVENLAFAXINE SUCCINATE
     Indication: PERSISTENT DEPRESSIVE DISORDER
     Dosage: 150 MG, DAILY
     Route: 048
  3. PRISTIQ EXTENDED?RELEASE [Suspect]
     Active Substance: DESVENLAFAXINE SUCCINATE
     Dosage: 100 MG
     Route: 048
  4. PRISTIQ EXTENDED?RELEASE [Suspect]
     Active Substance: DESVENLAFAXINE SUCCINATE
     Indication: DEPRESSION
     Dosage: 100 MG, ONCE DAILY (AT BEDTIME)
     Route: 048
     Dates: start: 2012, end: 2012

REACTIONS (9)
  - Drug dependence [Unknown]
  - Depressed mood [Unknown]
  - Cough [Unknown]
  - Dysphonia [Recovering/Resolving]
  - Crying [Unknown]
  - Illness [Not Recovered/Not Resolved]
  - Product prescribing error [Unknown]
  - Blood cholesterol increased [Unknown]
  - Dyspnoea [Unknown]

NARRATIVE: CASE EVENT DATE: 20200204
